FAERS Safety Report 16967318 (Version 3)
Quarter: 2021Q2

REPORT INFORMATION
  Report Type: Report from Study
  Country: US (occurrence: US)
  Receive Date: 20191028
  Receipt Date: 20210609
  Transmission Date: 20210716
  Serious: Yes (Hospitalization, Other)
  Sender: FDA-Public Use
  Company Number: US-SHIRE-US201935921

PATIENT
  Age: 45 Year
  Sex: Female
  Weight: 66 kg

DRUGS (12)
  1. TEDUGLUTIDE [Suspect]
     Active Substance: TEDUGLUTIDE
     Dosage: 2.84 MILLIGRAM, 1X/DAY:QD
     Route: 058
     Dates: start: 20181017
  2. TEDUGLUTIDE [Suspect]
     Active Substance: TEDUGLUTIDE
     Indication: SHORT-BOWEL SYNDROME
     Dosage: 2.84 MILLIGRAM, 1X/DAY:QD
     Route: 058
     Dates: start: 20181018
  3. TEDUGLUTIDE [Suspect]
     Active Substance: TEDUGLUTIDE
     Indication: SHORT-BOWEL SYNDROME
     Dosage: 2.84 MILLIGRAM, 1X/DAY:QD
     Route: 058
     Dates: start: 20181018
  4. TEDUGLUTIDE [Suspect]
     Active Substance: TEDUGLUTIDE
     Dosage: 2.84 MILLIGRAM, 1X/DAY:QD
     Route: 058
     Dates: start: 20181017
  5. TEDUGLUTIDE [Suspect]
     Active Substance: TEDUGLUTIDE
     Dosage: 2.84 MILLIGRAM, 1X/DAY:QD
     Route: 058
     Dates: start: 20181017
  6. TEDUGLUTIDE [Suspect]
     Active Substance: TEDUGLUTIDE
     Indication: SHORT-BOWEL SYNDROME
     Dosage: 2.84 MILLIGRAM, 1X/DAY:QD
     Route: 058
     Dates: start: 20181018
  7. TEDUGLUTIDE [Suspect]
     Active Substance: TEDUGLUTIDE
     Dosage: 2.84 MILLIGRAM, QD
     Route: 058
  8. TEDUGLUTIDE [Suspect]
     Active Substance: TEDUGLUTIDE
     Dosage: 2.84 MILLIGRAM, QD
     Route: 058
  9. TEDUGLUTIDE [Suspect]
     Active Substance: TEDUGLUTIDE
     Dosage: 2.84 MILLIGRAM, 1X/DAY:QD
     Route: 058
     Dates: start: 20181017
  10. TEDUGLUTIDE [Suspect]
     Active Substance: TEDUGLUTIDE
     Dosage: 2.84 MILLIGRAM, QD
     Route: 058
  11. TEDUGLUTIDE [Suspect]
     Active Substance: TEDUGLUTIDE
     Indication: SHORT-BOWEL SYNDROME
     Dosage: 2.84 MILLIGRAM, 1X/DAY:QD
     Route: 058
     Dates: start: 20181018
  12. TEDUGLUTIDE [Suspect]
     Active Substance: TEDUGLUTIDE
     Dosage: 2.84 MILLIGRAM, QD
     Route: 058

REACTIONS (6)
  - Infusion site discomfort [Unknown]
  - Weight fluctuation [Unknown]
  - Infusion site erythema [Unknown]
  - Vascular device infection [Unknown]
  - Infusion site pain [Unknown]
  - Weight decreased [Unknown]

NARRATIVE: CASE EVENT DATE: 20191001
